FAERS Safety Report 8893128 (Version 1)
Quarter: 2012Q4

REPORT INFORMATION
  Report Type: 
  Country: US (occurrence: US)
  Receive Date: 20121107
  Receipt Date: 20121107
  Transmission Date: 20130627
  Serious: No
  Sender: FDA-Public Use
  Company Number: US-AMGEN-USASP2011059057

PATIENT
  Sex: Female

DRUGS (13)
  1. ENBREL [Suspect]
     Indication: PRODUCT USED FOR UNKNOWN INDICATION
     Dosage: 50 mg, qwk
     Route: 058
  2. VITAMIN E                          /00110501/ [Concomitant]
     Dosage: UNK
  3. XANAX [Concomitant]
     Dosage: 0.25 mg, UNK
  4. OMEPRAZOLE [Concomitant]
     Dosage: 40 mg, UNK
  5. TOPROL [Concomitant]
     Dosage: 200 mg, UNK
  6. HYDROCHLOROTHIAZIDE [Concomitant]
     Dosage: 12.5 mg, UNK
  7. AMITRIPTYLIN [Concomitant]
     Dosage: 150 mg, UNK
  8. METHOTREXATE [Concomitant]
     Dosage: 250 mg, UNK
  9. FIBER [Concomitant]
     Dosage: UNK
  10. MEGA [Concomitant]
     Dosage: UNK
  11. MINERALS NOS [Concomitant]
     Dosage: UNK
  12. INDOMETHACIN                       /00003801/ [Concomitant]
     Dosage: 75 mg, UNK
  13. FOLIC ACID [Concomitant]
     Dosage: 1000 mug, UNK

REACTIONS (1)
  - Injection site pain [Unknown]
